FAERS Safety Report 4701332-X (Version None)
Quarter: 2005Q2

REPORT INFORMATION
  Report Type: 
  Country: None (occurrence: None)
  Receive Date: 20050627
  Receipt Date: 20050613
  Transmission Date: 20051028
  Serious: Yes (Other)
  Sender: FDA-Public Use
  Company Number: 2005087240

PATIENT
  Age: 19 Year
  Sex: Female
  Weight: 63.5036 kg

DRUGS (1)
  1. UNISOM [Suspect]
     Dosage: 9 TABLETS, ORAL
     Route: 048
     Dates: start: 20050613, end: 20050613

REACTIONS (2)
  - MENTAL DISORDER [None]
  - OVERDOSE [None]
